FAERS Safety Report 15346368 (Version 1)
Quarter: 2018Q3

REPORT INFORMATION
  Report Type: Spontaneous
  Country: BR (occurrence: BR)
  Receive Date: 20180904
  Receipt Date: 20180904
  Transmission Date: 20181010
  Serious: Yes (Other)
  Sender: FDA-Public Use
  Company Number: BR-SUN PHARMACEUTICAL INDUSTRIES LTD-2018RR-183405

PATIENT
  Age: 1 Year
  Sex: Female

DRUGS (6)
  1. SALBUTAMOL [Suspect]
     Active Substance: ALBUTEROL
     Indication: CROUP INFECTIOUS
     Dosage: UNK
     Route: 055
  2. CLARITHROMYCIN. [Suspect]
     Active Substance: CLARITHROMYCIN
     Indication: CROUP INFECTIOUS
     Dosage: UNK
     Route: 065
  3. ADRENALINE [Suspect]
     Active Substance: EPINEPHRINE
     Indication: CROUP INFECTIOUS
     Dosage: UNK
     Route: 065
  4. METHYLPREDNISOLONE. [Suspect]
     Active Substance: METHYLPREDNISOLONE
     Indication: CROUP INFECTIOUS
     Dosage: UNK
     Route: 065
  5. BUDESONIDE. [Suspect]
     Active Substance: BUDESONIDE
     Indication: CROUP INFECTIOUS
     Dosage: UNK
     Route: 065
  6. HELIOX [Suspect]
     Active Substance: OXYGEN
     Indication: CROUP INFECTIOUS
     Dosage: UNK
     Route: 065

REACTIONS (2)
  - Fungal infection [Recovered/Resolved]
  - Drug ineffective [Unknown]
